FAERS Safety Report 7646848-1 (Version None)
Quarter: 2011Q3

REPORT INFORMATION
  Report Type: 
  Country: None (occurrence: None)
  Receive Date: 20110729
  Receipt Date: 20110729
  Transmission Date: 20111222
  Serious: No
  Sender: FDA-Public Use
  Company Number: None

PATIENT
  Sex: Female
  Weight: 58.9676 kg

DRUGS (1)
  1. BACTRIM [Suspect]
     Indication: CYSTITIS
     Dosage: 800 / 160 1 TABLET BY MOUTH TWICE

REACTIONS (2)
  - VULVOVAGINAL BURNING SENSATION [None]
  - INSOMNIA [None]
